FAERS Safety Report 9815509 (Version 1)
Quarter: 2014Q1

REPORT INFORMATION
  Report Type: Spontaneous
  Country: US (occurrence: US)
  Receive Date: 20140114
  Receipt Date: 20140114
  Transmission Date: 20141002
  Serious: Yes (Other)
  Sender: FDA-Public Use
  Company Number: US-PFIZER INC-2014008816

PATIENT
  Sex: Female

DRUGS (11)
  1. AMLODIPINE BESILATE [Suspect]
     Dosage: UNK
     Dates: start: 201306
  2. DEPAKOTE [Concomitant]
     Dosage: UNK
  3. CLONAZEPAM [Concomitant]
     Dosage: UNK
  4. GLIMEPIRIDE [Concomitant]
     Dosage: UNK
  5. METFORMIN [Concomitant]
     Dosage: UNK
  6. FOLIC ACID [Concomitant]
     Dosage: UNK
  7. LISINOPRIL [Concomitant]
     Dosage: UNK
  8. ARMOUR THYROID [Concomitant]
     Dosage: UNK
  9. OMEGA-3 FATTY ACIDS [Concomitant]
     Dosage: UNK
  10. L-CARNITINE [Concomitant]
     Dosage: UNK
  11. VITAMIN D [Concomitant]
     Indication: RENAL DISORDER
     Dosage: UNK

REACTIONS (9)
  - Alanine aminotransferase increased [Unknown]
  - Liver function test abnormal [Unknown]
  - Joint swelling [Unknown]
  - Decreased appetite [Unknown]
  - Insomnia [Unknown]
  - Liver disorder [Unknown]
  - Hepatic pain [Unknown]
  - Discomfort [Unknown]
  - Stress [Unknown]
